FAERS Safety Report 4811016-5 (Version None)
Quarter: 2005Q4

REPORT INFORMATION
  Report Type: 
  Country: None (occurrence: None)
  Receive Date: 20051027
  Receipt Date: 20051024
  Transmission Date: 20060501
  Serious: Yes (Other)
  Sender: FDA-Public Use
  Company Number: GB-JNJFOC-20050903775

PATIENT
  Sex: Female
  Weight: 88 kg

DRUGS (6)
  1. DURAGESIC-50 [Suspect]
     Route: 062
  2. GABAPENTIN [Concomitant]
     Route: 065
  3. FLUOXETINE [Concomitant]
     Indication: DEPRESSION
     Route: 065
  4. PULMICORT [Concomitant]
     Indication: ASTHMA
     Route: 065
  5. BRICANYL [Concomitant]
     Indication: ASTHMA
     Route: 065
  6. MELOXICAM [Concomitant]
     Indication: PAIN
     Route: 065

REACTIONS (8)
  - APPLICATION SITE IRRITATION [None]
  - CONFUSIONAL STATE [None]
  - DRUG WITHDRAWAL SYNDROME [None]
  - HYPERHIDROSIS [None]
  - INTENTIONAL DRUG MISUSE [None]
  - SEDATION [None]
  - THERAPEUTIC RESPONSE DECREASED [None]
  - THERAPEUTIC RESPONSE INCREASED [None]
